FAERS Safety Report 8427713-9 (Version None)
Quarter: 2012Q2

REPORT INFORMATION
  Report Type: 
  Country: None (occurrence: None)
  Receive Date: 20120611
  Receipt Date: 20120601
  Transmission Date: 20120825
  Serious: Yes (Death, Hospitalization)
  Sender: FDA-Public Use
  Company Number: CA-JNJFOC-20110804731

PATIENT
  Sex: Female

DRUGS (11)
  1. PREDNISONE TAB [Concomitant]
  2. TRAMADOL HCL [Concomitant]
  3. ATIVAN [Concomitant]
  4. INDERAL [Concomitant]
  5. FOSAMAX [Concomitant]
  6. PANTOPRAZOLE SODIUM [Concomitant]
  7. FOLIC ACID [Concomitant]
  8. CALCIUM W/VITAMIN D NOS [Concomitant]
  9. METHOTREXATE [Concomitant]
  10. SIMPONI [Suspect]
     Indication: RHEUMATOID ARTHRITIS
     Route: 058
     Dates: start: 20100211, end: 20110811
  11. LIPITOR [Concomitant]

REACTIONS (1)
  - INTRACRANIAL ANEURYSM [None]
